FAERS Safety Report 10053524 (Version 1)
Quarter: 2014Q2

REPORT INFORMATION
  Report Type: Spontaneous
  Country: BR (occurrence: BR)
  Receive Date: 20140402
  Receipt Date: 20140402
  Transmission Date: 20141212
  Serious: Yes (Hospitalization, Other)
  Sender: FDA-Public Use
  Company Number: BR-PFIZER INC-2014089855

PATIENT
  Age: 12 Year
  Sex: Female
  Weight: 35 kg

DRUGS (3)
  1. PHENYTOIN [Suspect]
     Indication: EPILEPSY
     Dosage: 200 MG, 2X/DAY (12/12 HOURS)
     Route: 048
  2. VALPROIC ACID [Interacting]
     Indication: EPILEPSY
     Dosage: 300 MG IN THE MORNING AND 900 MG AT NIGHT
  3. LAMOTRIGINE [Concomitant]
     Indication: EPILEPSY
     Dosage: 100 MG, 12/12 HOURS

REACTIONS (14)
  - Drug interaction [Unknown]
  - Toxicity to various agents [Recovered/Resolved]
  - Cerebellar syndrome [Recovered/Resolved]
  - Nausea [Recovered/Resolved]
  - Vomiting [Recovered/Resolved]
  - Ataxia [Recovered/Resolved]
  - Diplopia [Recovered/Resolved]
  - Nystagmus [Recovered/Resolved]
  - Gait disturbance [Recovered/Resolved]
  - Confusional state [Recovered/Resolved]
  - Dystonia [Recovered/Resolved]
  - Generalised tonic-clonic seizure [Recovered/Resolved]
  - Unresponsive to stimuli [Recovered/Resolved]
  - Anticonvulsant drug level above therapeutic [Recovered/Resolved]
